FAERS Safety Report 15073324 (Version 1)
Quarter: 2018Q2

REPORT INFORMATION
  Report Type: Spontaneous
  Country: ES (occurrence: ES)
  Receive Date: 20180627
  Receipt Date: 20180627
  Transmission Date: 20180711
  Serious: Yes (Disabling)
  Sender: FDA-Public Use
  Company Number: PHHY2018ES029693

PATIENT
  Age: 40 Year
  Sex: Female

DRUGS (10)
  1. METHYLPREDNISOLONE. [Interacting]
     Active Substance: METHYLPREDNISOLONE
     Indication: ANTISYNTHETASE SYNDROME
  2. CICLOSPORIN [Concomitant]
     Active Substance: CYCLOSPORINE
     Indication: POLYMYOSITIS
     Dosage: 100 MG, BID
     Route: 065
     Dates: start: 20110701
  3. ESCITALOPRAM [Concomitant]
     Active Substance: ESCITALOPRAM OXALATE
     Indication: DEPRESSION
     Dosage: 10 MG, QD
     Route: 065
     Dates: start: 20110401
  4. LEVOFLOXACIN. [Suspect]
     Active Substance: LEVOFLOXACIN
     Indication: UPPER RESPIRATORY TRACT INFECTION
     Dosage: 500 MG, BID
     Route: 065
  5. METHYLPREDNISOLONE. [Interacting]
     Active Substance: METHYLPREDNISOLONE
     Indication: POLYMYOSITIS
     Dosage: 20 MG, QD
     Route: 065
     Dates: start: 20110701
  6. CALCIUM [Concomitant]
     Active Substance: CALCIUM
     Indication: POLYMYOSITIS
     Dosage: 2 OT, UNK
     Route: 065
     Dates: start: 20110701
  7. CICLOSPORIN [Concomitant]
     Active Substance: CYCLOSPORINE
     Indication: ANTISYNTHETASE SYNDROME
  8. IBANDRONATE SODIUM. [Concomitant]
     Active Substance: IBANDRONATE SODIUM
     Indication: ANTISYNTHETASE SYNDROME
  9. IBANDRONATE SODIUM. [Concomitant]
     Active Substance: IBANDRONATE SODIUM
     Indication: POLYMYOSITIS
     Dosage: 150 MG, QD
     Route: 065
     Dates: start: 20110701
  10. CALCIUM [Concomitant]
     Active Substance: CALCIUM
     Indication: ANTISYNTHETASE SYNDROME

REACTIONS (6)
  - Tendon rupture [Recovering/Resolving]
  - Swelling [Recovering/Resolving]
  - Gait inability [Recovering/Resolving]
  - Tendon pain [Recovering/Resolving]
  - Haemarthrosis [Recovering/Resolving]
  - Tendon disorder [Recovering/Resolving]
